FAERS Safety Report 7523906-3 (Version None)
Quarter: 2011Q2

REPORT INFORMATION
  Report Type: 
  Country: None (occurrence: None)
  Receive Date: 20110603
  Receipt Date: 20110526
  Transmission Date: 20111010
  Serious: Yes (Hospitalization, Disabling, Other)
  Sender: FDA-Public Use
  Company Number: US-MERCK-1103USA02674

PATIENT
  Age: 46 Year
  Sex: Female

DRUGS (5)
  1. FOSAMAX [Suspect]
     Indication: OSTEOPENIA
     Route: 048
     Dates: start: 19991201, end: 20071001
  2. VITAMINS (UNSPECIFIED) [Concomitant]
     Route: 048
  3. CORTICOSTEROIDS (UNSPECIFIED) [Concomitant]
     Route: 048
  4. [THERAPY UNSPECIFIED] [Concomitant]
     Indication: HYPERTENSION
     Route: 048
  5. FOSAMAX [Suspect]
     Indication: OSTEOPOROSIS PROPHYLAXIS
     Route: 048
     Dates: start: 19991201, end: 20071001

REACTIONS (14)
  - OSTEONECROSIS [None]
  - DRUG HYPERSENSITIVITY [None]
  - STRESS FRACTURE [None]
  - LOW TURNOVER OSTEOPATHY [None]
  - BONE METABOLISM DISORDER [None]
  - FEMUR FRACTURE [None]
  - FALL [None]
  - FRACTURE DELAYED UNION [None]
  - FRACTURE NONUNION [None]
  - BLOOD CHOLESTEROL INCREASED [None]
  - HYPOTHYROIDISM [None]
  - BONE DISORDER [None]
  - RHEUMATOID ARTHRITIS [None]
  - DEVICE FAILURE [None]
